APPROVED DRUG PRODUCT: NIFEDIPINE
Active Ingredient: NIFEDIPINE
Strength: 10MG
Dosage Form/Route: CAPSULE;ORAL
Application: A072409 | Product #001
Applicant: CHASE LABORATORIES INC
Approved: Jul 4, 1990 | RLD: No | RS: No | Type: DISCN